FAERS Safety Report 24711713 (Version 2)
Quarter: 2025Q1

REPORT INFORMATION
  Report Type: Spontaneous
  Country: CA (occurrence: CA)
  Receive Date: 20241209
  Receipt Date: 20250207
  Transmission Date: 20250408
  Serious: Yes (Other)
  Sender: SANDOZ
  Company Number: CA-Sandoz Group AG-00006186

PATIENT
  Age: 45 Year
  Sex: Female
  Weight: 50 kg

DRUGS (2)
  1. ROCURONIUM BROMIDE [Suspect]
     Active Substance: ROCURONIUM BROMIDE
     Indication: Product used for unknown indication
     Route: 065
  2. ROCURONIUM BROMIDE [Suspect]
     Active Substance: ROCURONIUM BROMIDE
     Route: 065

REACTIONS (3)
  - Respiratory distress [Unknown]
  - Cough [Unknown]
  - Drug ineffective [Unknown]
